FAERS Safety Report 4709304-6 (Version None)
Quarter: 2005Q3

REPORT INFORMATION
  Report Type: 
  Country: None (occurrence: None)
  Receive Date: 20050708
  Receipt Date: 20040823
  Transmission Date: 20060218
  Serious: Yes (Other)
  Sender: FDA-Public Use
  Company Number: US-BRISTOL-MYERS SQUIBB COMPANY-12681722

PATIENT
  Age: 48 Year
  Sex: Female

DRUGS (5)
  1. ESTRACE [Suspect]
     Indication: HORMONE REPLACEMENT THERAPY
     Dates: end: 19990127
  2. PROVERA [Suspect]
     Indication: HORMONE REPLACEMENT THERAPY
     Dates: end: 19990127
  3. TENORMIN [Concomitant]
     Indication: MIGRAINE
  4. NORVASC [Concomitant]
     Indication: RAYNAUD'S PHENOMENON
  5. BENTYL [Concomitant]

REACTIONS (1)
  - BREAST CANCER [None]
